FAERS Safety Report 7555208-3 (Version None)
Quarter: 2011Q2

REPORT INFORMATION
  Report Type: 
  Country: None (occurrence: None)
  Receive Date: 20110617
  Receipt Date: 20110608
  Transmission Date: 20111010
  Serious: Yes (Other)
  Sender: FDA-Public Use
  Company Number: PHHY2011IT52118

PATIENT
  Sex: Female

DRUGS (1)
  1. SYNTOCINON [Suspect]
     Indication: LABOUR INDUCTION
     Dosage: MATERNAL DOSE
     Route: 064

REACTIONS (3)
  - DRUG EXPOSURE DURING PREGNANCY [None]
  - PREMATURE BABY [None]
  - SKULL MALFORMATION [None]
